FAERS Safety Report 8176596-3 (Version None)
Quarter: 2012Q1

REPORT INFORMATION
  Report Type: 
  Country: None (occurrence: None)
  Receive Date: 20120301
  Receipt Date: 20120222
  Transmission Date: 20120608
  Serious: Yes (Life-Threatening)
  Sender: FDA-Public Use
  Company Number: NO-JNJFOC-20120212267

PATIENT
  Age: 41 Year
  Sex: Female
  Weight: 63 kg

DRUGS (4)
  1. REMICADE [Suspect]
     Route: 042
     Dates: start: 20120101
  2. REMICADE [Suspect]
     Indication: CROHN'S DISEASE
     Route: 042
     Dates: start: 20120220, end: 20120220
  3. IMURAN [Concomitant]
     Indication: CROHN'S DISEASE
     Route: 065
  4. REMICADE [Suspect]
     Route: 042
     Dates: start: 20071101, end: 20081001

REACTIONS (7)
  - TACHYCARDIA [None]
  - FLUSHING [None]
  - NAUSEA [None]
  - ABDOMINAL PAIN UPPER [None]
  - DYSPNOEA [None]
  - INFUSION RELATED REACTION [None]
  - OEDEMA [None]
